FAERS Safety Report 12516971 (Version 1)
Quarter: 2016Q2

REPORT INFORMATION
  Report Type: Spontaneous
  Country: GB (occurrence: GB)
  Receive Date: 20160630
  Receipt Date: 20160630
  Transmission Date: 20160815
  Serious: Yes (Other)
  Sender: FDA-Public Use
  Company Number: GB-APOTEX-2016AP008498

PATIENT

DRUGS (10)
  1. PAROXETINE. [Suspect]
     Active Substance: PAROXETINE
     Dosage: 16.5 MG, QD
  2. MIRTAZAPINE. [Concomitant]
     Active Substance: MIRTAZAPINE
     Indication: PRODUCT USED FOR UNKNOWN INDICATION
  3. PAXIL [Suspect]
     Active Substance: PAROXETINE HYDROCHLORIDE
     Indication: PRODUCT USED FOR UNKNOWN INDICATION
     Dosage: 4.5 MG, QD
     Route: 065
     Dates: start: 19970812
  4. BUSPAR [Concomitant]
     Active Substance: BUSPIRONE HYDROCHLORIDE
     Indication: PRODUCT USED FOR UNKNOWN INDICATION
     Route: 065
  5. MIRTAZAPINE. [Concomitant]
     Active Substance: MIRTAZAPINE
     Indication: PRODUCT USED FOR UNKNOWN INDICATION
     Dosage: UNK
     Route: 065
     Dates: start: 20051004
  6. PAROXETINE. [Suspect]
     Active Substance: PAROXETINE
     Indication: SOCIAL ANXIETY DISORDER
     Dosage: 30 MG, QD
  7. PAXIL [Suspect]
     Active Substance: PAROXETINE HYDROCHLORIDE
     Indication: ANXIETY
  8. PAXIL [Suspect]
     Active Substance: PAROXETINE HYDROCHLORIDE
     Indication: DEPRESSION
     Route: 065
     Dates: start: 19970812
  9. PAROXETINE. [Suspect]
     Active Substance: PAROXETINE
     Dosage: 13.5 MG, QD
  10. BUSPAR [Concomitant]
     Active Substance: BUSPIRONE HYDROCHLORIDE
     Indication: PRODUCT USED FOR UNKNOWN INDICATION
     Dosage: UNK
     Route: 065

REACTIONS (41)
  - Diarrhoea [Unknown]
  - Abdominal pain [Unknown]
  - Memory impairment [Unknown]
  - Pollakiuria [Unknown]
  - Confusional state [Unknown]
  - Skin burning sensation [Unknown]
  - Panic disorder [Unknown]
  - Mood altered [Unknown]
  - Nightmare [Unknown]
  - Sleep disorder [Unknown]
  - Insomnia [Unknown]
  - Decreased appetite [Unknown]
  - Rebound effect [Unknown]
  - Drug dependence [Unknown]
  - Micturition urgency [Unknown]
  - Adverse drug reaction [Unknown]
  - Self esteem decreased [Unknown]
  - Feeling of despair [Unknown]
  - Erectile dysfunction [Unknown]
  - Feeling abnormal [Unknown]
  - Myalgia [Unknown]
  - Suicidal ideation [Unknown]
  - Fatigue [Unknown]
  - Lethargy [Unknown]
  - Tremor [Unknown]
  - Hyperhidrosis [Unknown]
  - Disturbance in attention [Unknown]
  - Weight decreased [Unknown]
  - Vomiting [Unknown]
  - Paraesthesia [Unknown]
  - Withdrawal syndrome [Unknown]
  - Influenza like illness [Unknown]
  - Dizziness [Unknown]
  - Depressed mood [Unknown]
  - Malaise [Unknown]
  - Anxiety [Unknown]
  - Nausea [Unknown]
  - Agitation [Unknown]
  - Fear [Unknown]
  - Gastroenteritis [Unknown]
  - Tachyphrenia [Unknown]

NARRATIVE: CASE EVENT DATE: 20020101
